FAERS Safety Report 4904311-2 (Version None)
Quarter: 2006Q1

REPORT INFORMATION
  Report Type: 
  Country: None (occurrence: None)
  Receive Date: 20060208
  Receipt Date: 20050822
  Transmission Date: 20060701
  Serious: No
  Sender: FDA-Public Use
  Company Number: US-GLAXOSMITHKLINE-A0571214A

PATIENT
  Age: 66 Year
  Sex: Female

DRUGS (20)
  1. PAXIL [Suspect]
     Indication: OBSESSIVE-COMPULSIVE DISORDER
     Dosage: 10MG PER DAY
     Route: 048
  2. PAROXETINE HCL [Suspect]
     Indication: OBSESSIVE-COMPULSIVE DISORDER
     Dosage: 10MG PER DAY
     Route: 048
     Dates: start: 20051115
  3. PROCARDIA XL [Concomitant]
  4. MICRO-K [Concomitant]
  5. MOTRIN [Concomitant]
  6. VITAMIN B COMPLEX CAP [Concomitant]
  7. ASCORBIC ACID [Concomitant]
  8. VITAMIN E [Concomitant]
  9. GARLIC OIL [Concomitant]
  10. LORAZEPAM [Concomitant]
  11. SYNTHROID [Concomitant]
  12. ROBAXIN [Concomitant]
  13. ACIDOPHILUS [Concomitant]
  14. IRON [Concomitant]
  15. MAGNESIUM OXIDE [Concomitant]
  16. TYLENOL [Concomitant]
  17. PHENOBARBITAL TAB [Concomitant]
  18. AMBIEN [Concomitant]
  19. TRIMETHOBENZAMIDE [Concomitant]
  20. PREVACID [Concomitant]

REACTIONS (13)
  - ABASIA [None]
  - AMNESIA [None]
  - CHEST PAIN [None]
  - DIZZINESS [None]
  - DRUG INEFFECTIVE [None]
  - EATING DISORDER [None]
  - FIBROMYALGIA [None]
  - HEADACHE [None]
  - HYPERTONIC BLADDER [None]
  - INCOHERENT [None]
  - INSOMNIA [None]
  - NAUSEA [None]
  - OBSESSIVE-COMPULSIVE DISORDER [None]
